FAERS Safety Report 5034209-3 (Version None)
Quarter: 2006Q2

REPORT INFORMATION
  Report Type: 
  Country: None (occurrence: None)
  Receive Date: 20060626
  Receipt Date: 20060607
  Transmission Date: 20061013
  Serious: Yes (Hospitalization)
  Sender: FDA-Public Use
  Company Number: JP-JPN-A200601905

PATIENT
  Age: 66 Year
  Sex: Male
  Weight: 54 kg

DRUGS (16)
  1. VALTREX [Suspect]
     Indication: HERPES ZOSTER
     Dosage: 1000MG TWICE PER DAY
     Route: 048
     Dates: start: 20060601, end: 20060603
  2. CYANOCOBALAMIN [Concomitant]
     Indication: HERPES ZOSTER
     Dosage: 1.5MG PER DAY
     Route: 048
     Dates: start: 20060601, end: 20060605
  3. CRAVIT [Concomitant]
     Indication: RENAL FAILURE CHRONIC
     Dosage: 100MG PER DAY
     Route: 048
     Dates: start: 20060530, end: 20060603
  4. NAPROXEN [Concomitant]
     Indication: HERPES ZOSTER
     Dosage: 600MG PER DAY
     Route: 048
     Dates: start: 20060601, end: 20060605
  5. ALINAMIN-F [Concomitant]
     Indication: HERPES ZOSTER
     Dosage: 75MG PER DAY
     Route: 048
     Dates: start: 20060601, end: 20060605
  6. PROMAC [Concomitant]
     Indication: RENAL FAILURE CHRONIC
     Dosage: 1G PER DAY
     Route: 048
  7. TAKEPRON [Concomitant]
     Indication: RENAL FAILURE CHRONIC
     Dosage: 15MG PER DAY
     Route: 048
  8. ASPIRIN [Concomitant]
     Indication: RENAL FAILURE CHRONIC
     Dosage: 100MG PER DAY
     Route: 048
  9. ISOSORBIDE MONONITRATE [Concomitant]
     Indication: RENAL FAILURE CHRONIC
     Dosage: 40MG PER DAY
     Route: 048
     Dates: start: 20060330
  10. SIGMART [Concomitant]
     Dosage: 15MG PER DAY
     Route: 048
     Dates: start: 20060330
  11. URSO [Concomitant]
     Indication: RENAL FAILURE CHRONIC
     Dosage: 300MG PER DAY
     Route: 048
  12. BIO THREE [Concomitant]
     Indication: RENAL FAILURE CHRONIC
     Dosage: 3U PER DAY
     Route: 048
  13. CALTAN [Concomitant]
     Indication: RENAL FAILURE CHRONIC
     Dosage: 3G PER DAY
     Route: 048
  14. GOSHA-JINKI-GAN [Concomitant]
     Indication: RENAL FAILURE CHRONIC
     Dosage: 7.5G PER DAY
     Route: 048
  15. MEXITIL [Concomitant]
     Indication: RENAL FAILURE CHRONIC
     Dosage: 150MG PER DAY
     Route: 048
     Dates: start: 20060514
  16. PANALDINE [Concomitant]
     Indication: CAROTID ARTERY STENOSIS
     Dosage: 200MG PER DAY
     Route: 048
     Dates: start: 20060227

REACTIONS (9)
  - ASTHENIA [None]
  - DELUSION [None]
  - DIPLOPIA [None]
  - DIZZINESS [None]
  - DYSARTHRIA [None]
  - HALLUCINATION [None]
  - HYPOAESTHESIA [None]
  - SPEECH DISORDER [None]
  - TOXIC INDUCED ENCEPHALOPATHY [None]
